FAERS Safety Report 16517738 (Version 1)
Quarter: 2019Q3

REPORT INFORMATION
  Report Type: Spontaneous
  Country: US (occurrence: US)
  Receive Date: 20190522
  Receipt Date: 20190522
  Transmission Date: 20191004
  Serious: Yes (Other)
  Sender: FDA-Public Use
  Company Number: None

PATIENT
  Age: 74 Year
  Sex: Female
  Weight: 90.72 kg

DRUGS (5)
  1. SERTRALINE [Concomitant]
     Active Substance: SERTRALINE HYDROCHLORIDE
  2. RAMIPRIL 5MG [Suspect]
     Active Substance: RAMIPRIL
     Indication: HYPERTENSION
     Dosage: ?          QUANTITY:5 MG MILLIGRAM(S);?
     Route: 048
     Dates: start: 20190312, end: 20190430
  3. OXYBUTYNIN. [Concomitant]
     Active Substance: OXYBUTYNIN CHLORIDE
  4. BYSTOLIC [Concomitant]
     Active Substance: NEBIVOLOL HYDROCHLORIDE
  5. ADULT MULTIVITAMIN BY KIRKLAND [Concomitant]

REACTIONS (13)
  - Abdominal discomfort [None]
  - Acne [None]
  - Peripheral coldness [None]
  - Myalgia [None]
  - Arthralgia [None]
  - Ear pain [None]
  - Urticaria [None]
  - Joint swelling [None]
  - Disturbance in attention [None]
  - Confusional state [None]
  - Gait disturbance [None]
  - Amnesia [None]
  - Burning sensation [None]
